FAERS Safety Report 6574546-4 (Version None)
Quarter: 2010Q1

REPORT INFORMATION
  Report Type: 
  Country: None (occurrence: None)
  Receive Date: 20100209
  Receipt Date: 20090731
  Transmission Date: 20100710
  Serious: No
  Sender: FDA-Public Use
  Company Number: A0799897A

PATIENT
  Sex: Female

DRUGS (3)
  1. PAROXETINE HCL [Suspect]
  2. LOTREL [Concomitant]
  3. SINGULAIR [Concomitant]

REACTIONS (1)
  - EAR INFECTION [None]
